FAERS Safety Report 18974230 (Version 1)
Quarter: 2021Q1

REPORT INFORMATION
  Report Type: Report from Study
  Country: GB (occurrence: GB)
  Receive Date: 20210305
  Receipt Date: 20210305
  Transmission Date: 20210420
  Serious: Yes (Other)
  Sender: FDA-Public Use
  Company Number: GB-PUMA BIOTECHNOLOGY, INC.-2020GB009215

PATIENT
  Age: 48 Year
  Sex: Female

DRUGS (48)
  1. DENOSUMAB [Concomitant]
     Active Substance: DENOSUMAB
     Dosage: UNK, UNKNOWN
     Route: 058
     Dates: start: 20191220
  2. LOSARTAN. [Concomitant]
     Active Substance: LOSARTAN
     Indication: EJECTION FRACTION DECREASED
     Dosage: 12.5 MG, QD (1/DAY)
     Route: 048
     Dates: start: 201612, end: 20170609
  3. CAPECITABINE. [Suspect]
     Active Substance: CAPECITABINE
     Indication: BREAST CANCER METASTATIC
     Dosage: 1300 MG, QD (1/DAY)
     Route: 048
     Dates: start: 20200120, end: 20200131
  4. TRASTUZUMAB. [Suspect]
     Active Substance: TRASTUZUMAB
     Dosage: 336 MG, 3/WEEK (CV)
     Route: 041
     Dates: start: 20160122, end: 20161014
  5. PERTUZUMAB. [Suspect]
     Active Substance: PERTUZUMAB
     Indication: BREAST CANCER METASTATIC
     Dosage: 840 MG, 3/WEEK (CV)
     Route: 042
     Dates: start: 20150305, end: 20150305
  6. METOCLOPRAMIDE. [Concomitant]
     Active Substance: METOCLOPRAMIDE
     Indication: PRODUCT USED FOR UNKNOWN INDICATION
     Dosage: 20 MG, QD (1/DAY)
     Route: 042
     Dates: start: 20161118, end: 20161118
  7. GABAPENTIN. [Concomitant]
     Active Substance: GABAPENTIN
     Indication: VOMITING
     Dosage: UNK, UNKNOWN
     Route: 065
     Dates: start: 201703, end: 201711
  8. DEXAMETHASONE. [Concomitant]
     Active Substance: DEXAMETHASONE
     Dosage: 1 MG, QD (1/DAY)
     Route: 048
     Dates: start: 20160922, end: 20200131
  9. DEXAMETHASONE. [Concomitant]
     Active Substance: DEXAMETHASONE
     Dosage: 8 MG, QD (1/DAY)
     Route: 048
     Dates: start: 20200131, end: 20200131
  10. TRASTUZUMAB. [Suspect]
     Active Substance: TRASTUZUMAB
     Indication: BREAST CANCER METASTATIC
     Dosage: 451.5 MG, 3/WEEK (CV)
     Route: 041
     Dates: start: 20150305, end: 20150305
  11. DENOSUMAB [Concomitant]
     Active Substance: DENOSUMAB
     Indication: PRODUCT USED FOR UNKNOWN INDICATION
     Dosage: UNK, MONTHLY
     Route: 058
     Dates: start: 201609, end: 20191030
  12. BISOPROLOL [Concomitant]
     Active Substance: BISOPROLOL
     Indication: EJECTION FRACTION DECREASED
     Dosage: 2.5 MG, QD (1/DAY)
     Route: 048
     Dates: start: 20161019
  13. ITRACONAZOLE. [Concomitant]
     Active Substance: ITRACONAZOLE
     Indication: NAIL INFECTION
     Dosage: 200 MG, BID (2/DAY)
     Route: 048
     Dates: start: 20150708, end: 20150909
  14. NYSTATIN. [Concomitant]
     Active Substance: NYSTATIN
     Indication: ORAL CANDIDIASIS
     Dosage: TIME INTERVAL: 0.33 D
     Route: 048
     Dates: start: 20170613, end: 20170626
  15. CYCLIZINE [Concomitant]
     Active Substance: CYCLIZINE
     Indication: NAUSEA
     Dosage: 50 MG, UNKNOWN
     Route: 048
     Dates: start: 20160411, end: 20160423
  16. DEXAMETHASONE. [Concomitant]
     Active Substance: DEXAMETHASONE
     Dosage: 0.25 ?G, QD (1/DAY)
     Route: 048
     Dates: start: 20200209
  17. PERTUZUMAB. [Suspect]
     Active Substance: PERTUZUMAB
     Dosage: 420 MG, 3/WEEK (CV)
     Route: 042
     Dates: start: 20150327, end: 20161014
  18. TRASTUZUMAB EMTANSINE [Suspect]
     Active Substance: ADO-TRASTUZUMAB EMTANSINE
     Dosage: 164 MG, 3/WEEK (CV)
     Route: 042
     Dates: start: 20171124, end: 20191220
  19. ENOXAPARIN [Concomitant]
     Active Substance: ENOXAPARIN
     Dosage: 40 MG, QD (1/DAY)
     Route: 058
     Dates: start: 20200131, end: 20200206
  20. ONDANSETRON [Concomitant]
     Active Substance: ONDANSETRON
     Dosage: 8 MG, UNKNOWN
     Route: 048
     Dates: start: 20161216
  21. ONDANSETRON [Concomitant]
     Active Substance: ONDANSETRON
     Dosage: 8 MG, BID (2/DAY)
     Route: 048
     Dates: start: 20170609, end: 20170610
  22. DEXAMETHASONE. [Concomitant]
     Active Substance: DEXAMETHASONE
     Dosage: 0.5 ?G, QD (1/DAY)
     Route: 048
     Dates: start: 20200207, end: 20200208
  23. DOCETAXEL. [Suspect]
     Active Substance: DOCETAXEL
     Indication: BREAST CANCER METASTATIC
     Dosage: 120 MG, 3/WEEK (CV)
     Route: 042
     Dates: start: 20150306, end: 20150306
  24. DOCETAXEL. [Suspect]
     Active Substance: DOCETAXEL
     Dosage: 110 MG, 3/WEEK (CV)
     Route: 042
     Dates: start: 20150327, end: 20150619
  25. TRASTUZUMAB EMTANSINE [Suspect]
     Active Substance: ADO-TRASTUZUMAB EMTANSINE
     Dosage: 200 MG, 3/WEEK (CV)
     Route: 042
     Dates: start: 20170224, end: 20170623
  26. NITROFURANTOIN. [Concomitant]
     Active Substance: NITROFURANTOIN
     Indication: URINARY TRACT INFECTION
     Dosage: UNK, UNKNOWN
     Route: 048
     Dates: start: 20190424
  27. NORMAL SALINE [Concomitant]
     Active Substance: SODIUM CHLORIDE
     Indication: VOMITING
     Dosage: UNK, UNKNOWN
     Route: 042
     Dates: start: 20200131, end: 20200204
  28. ENOXAPARIN [Concomitant]
     Active Substance: ENOXAPARIN
     Indication: PRODUCT USED FOR UNKNOWN INDICATION
     Dosage: 20 MG, QD (1/DAY)
     Route: 058
     Dates: start: 20170609, end: 20170613
  29. DEXAMETHASONE. [Concomitant]
     Active Substance: DEXAMETHASONE
     Indication: NAUSEA
     Dosage: 2 MG, QD (1/DAY)
     Route: 048
     Dates: start: 20160416, end: 20160921
  30. AMITRIPTYLINE [Concomitant]
     Active Substance: AMITRIPTYLINE
     Indication: NEUROPATHY PERIPHERAL
     Dosage: 10 MG, UNKNOWN
     Route: 048
     Dates: start: 201702, end: 201705
  31. TRASTUZUMAB EMTANSINE [Suspect]
     Active Substance: ADO-TRASTUZUMAB EMTANSINE
     Dosage: 180 MG, 3/WEEK (CV)
     Route: 042
     Dates: start: 20170721, end: 20171103
  32. RAMIPRIL. [Concomitant]
     Active Substance: RAMIPRIL
     Indication: EJECTION FRACTION DECREASED
     Dosage: 2.5 MG, QD (1/DAY)
     Route: 048
     Dates: start: 20161027, end: 201612
  33. ADCAL [CALCIUM CARBONATE] [Concomitant]
     Indication: PRODUCT USED FOR UNKNOWN INDICATION
     Dosage: UNK, BID (2/DAY)
     Route: 048
  34. GABAPENTIN. [Concomitant]
     Active Substance: GABAPENTIN
     Indication: NEUROPATHY PERIPHERAL
     Dosage: 300 MG, TID (3/DAY)
     Route: 048
     Dates: start: 20170614
  35. DEXAMETHASONE. [Concomitant]
     Active Substance: DEXAMETHASONE
     Dosage: 4 MG, QD (1/DAY)
     Route: 048
     Dates: start: 20200201, end: 20200202
  36. LANSOPRAZOLE. [Concomitant]
     Active Substance: LANSOPRAZOLE
     Indication: NAUSEA
     Dosage: 30 MG, QD (1/DAY)
     Route: 048
     Dates: start: 20160411, end: 20160425
  37. NERATINIB [Suspect]
     Active Substance: NERATINIB
     Indication: HER2 POSITIVE BREAST CANCER
     Dosage: 240 MG, DAILY
     Route: 048
     Dates: start: 20200122
  38. TRASTUZUMAB. [Suspect]
     Active Substance: TRASTUZUMAB
     Dosage: 346.5 MG, 3/WEEK (CV)
     Route: 041
     Dates: start: 20150327, end: 20160122
  39. TRASTUZUMAB EMTANSINE [Suspect]
     Active Substance: ADO-TRASTUZUMAB EMTANSINE
     Indication: BREAST CANCER METASTATIC
     Dosage: 240 MG, 3/WEEK (CV)
     Route: 042
     Dates: start: 20161118, end: 20170127
  40. ONDANSETRON [Concomitant]
     Active Substance: ONDANSETRON
     Indication: PRODUCT USED FOR UNKNOWN INDICATION
     Dosage: 8 MG, UNKNOWN
     Route: 048
     Dates: start: 20150327, end: 20150619
  41. ONDANSETRON [Concomitant]
     Active Substance: ONDANSETRON
     Dosage: 4 PUFF, TID (3/DAY)
     Route: 048
     Dates: start: 20200131
  42. LOSARTAN. [Concomitant]
     Active Substance: LOSARTAN
     Dosage: 12.5 MG, QD (1/DAY)
     Route: 048
     Dates: start: 20170612, end: 20200219
  43. CYCLIZINE [Concomitant]
     Active Substance: CYCLIZINE
     Dosage: 50 MG, UNKNOWN
     Route: 048
     Dates: start: 20170611, end: 20170823
  44. ENOXAPARIN [Concomitant]
     Active Substance: ENOXAPARIN
     Dosage: 40 MG, QD (1/DAY)
     Route: 058
     Dates: start: 20170613, end: 20170615
  45. MAGNESIUM ASPARTATE [Concomitant]
     Active Substance: MAGNESIUM ASPARTATE
     Indication: VOMITING
     Dosage: 1 DF, BID (2/DAY)
     Route: 048
     Dates: start: 20200204, end: 20200210
  46. DEXAMETHASONE. [Concomitant]
     Active Substance: DEXAMETHASONE
     Indication: HEADACHE
     Dosage: 4 MG, QD (1/DAY)
     Route: 048
     Dates: start: 20160411, end: 20160416
  47. DEXAMETHASONE. [Concomitant]
     Active Substance: DEXAMETHASONE
     Dosage: 2 MG, QD (1/DAY)
     Route: 048
     Dates: start: 20200203, end: 20200206
  48. LANSOPRAZOLE. [Concomitant]
     Active Substance: LANSOPRAZOLE
     Dosage: 30 MG, QD (1/DAY)
     Route: 048
     Dates: start: 20170609, end: 20170616

REACTIONS (2)
  - Thrombocytopenia [Recovered/Resolved]
  - Alanine aminotransferase increased [Recovered/Resolved]

NARRATIVE: CASE EVENT DATE: 20170712
